FAERS Safety Report 10032796 (Version 2)
Quarter: 2014Q2

REPORT INFORMATION
  Report Type: Spontaneous
  Country: JP (occurrence: JP)
  Receive Date: 20140324
  Receipt Date: 20140414
  Transmission Date: 20141212
  Serious: Yes (Hospitalization)
  Sender: FDA-Public Use
  Company Number: JP-ELI_LILLY_AND_COMPANY-JP201403005423

PATIENT
  Age: 75 Year
  Sex: Male

DRUGS (2)
  1. GEMZAR [Suspect]
     Indication: PANCREATIC CARCINOMA STAGE IV
     Dosage: 1200 MG, UNK
     Route: 042
     Dates: start: 20130702
  2. DECADRON                                /CAN/ [Suspect]
     Indication: DECREASED APPETITE
     Dosage: 1 MG, UNK
     Route: 048
     Dates: start: 20130702

REACTIONS (2)
  - Hepatitis B [Recovering/Resolving]
  - Decreased appetite [Recovered/Resolved]
